FAERS Safety Report 19289205 (Version 1)
Quarter: 2021Q2

REPORT INFORMATION
  Report Type: Report from Study
  Country: CN (occurrence: CN)
  Receive Date: 20210522
  Receipt Date: 20210522
  Transmission Date: 20210717
  Serious: Yes (Other)
  Sender: FDA-Public Use
  Company Number: NVSC2021CN109638

PATIENT
  Age: 65 Year
  Sex: Male

DRUGS (1)
  1. ZYKADIA [Suspect]
     Active Substance: CERITINIB
     Indication: NON-SMALL CELL LUNG CANCER
     Dosage: 450 MG (3 CAPSULE)
     Route: 048
     Dates: start: 20190114, end: 20190220

REACTIONS (4)
  - Type 2 diabetes mellitus [Not Recovered/Not Resolved]
  - Diarrhoea [Not Recovered/Not Resolved]
  - Rash [Recovering/Resolving]
  - Liver injury [Recovered/Resolved]

NARRATIVE: CASE EVENT DATE: 20190214
